FAERS Safety Report 6638862-X (Version None)
Quarter: 2010Q1

REPORT INFORMATION
  Report Type: 
  Country: None (occurrence: None)
  Receive Date: 20100317
  Receipt Date: 20100302
  Transmission Date: 20100710
  Serious: Yes (Other)
  Sender: FDA-Public Use
  Company Number: US-PFIZER INC-2009315514

PATIENT
  Sex: Female

DRUGS (2)
  1. XALATAN [Suspect]
     Dosage: UNK
  2. BRIMONIDINE [Suspect]
     Dosage: UNK

REACTIONS (2)
  - ATRIAL FLUTTER [None]
  - MEDICATION ERROR [None]
